FAERS Safety Report 21615732 (Version 1)
Quarter: 2022Q4

REPORT INFORMATION
  Report Type: Spontaneous
  Country: US (occurrence: None)
  Receive Date: 20221118
  Receipt Date: 20221118
  Transmission Date: 20230112
  Serious: No
  Sender: FDA-Public Use
  Company Number: None

PATIENT
  Age: 72 Year
  Sex: Male
  Weight: 111.6 kg

DRUGS (4)
  1. XTANDI [Suspect]
     Active Substance: ENZALUTAMIDE
     Indication: Prostate cancer
     Dosage: FREQUENCY : DAILY;?
     Route: 048
     Dates: start: 20220513
  2. ALEVE [Concomitant]
     Active Substance: NAPROXEN SODIUM
     Dates: start: 20221118
  3. METFORMIN [Concomitant]
     Active Substance: METFORMIN HYDROCHLORIDE
     Dates: start: 20221118
  4. LOSARTAN [Concomitant]
     Active Substance: LOSARTAN
     Dates: start: 20221118

REACTIONS (2)
  - Oral herpes [None]
  - Hot flush [None]

NARRATIVE: CASE EVENT DATE: 20221118
